FAERS Safety Report 16300749 (Version 1)
Quarter: 2019Q2

REPORT INFORMATION
  Report Type: Spontaneous
  Country: FR (occurrence: FR)
  Receive Date: 20190510
  Receipt Date: 20190510
  Transmission Date: 20190711
  Serious: Yes (Life-Threatening, Hospitalization)
  Sender: FDA-Public Use
  Company Number: FR-PFIZER INC-2019195790

PATIENT
  Age: 23 Year
  Sex: Female

DRUGS (4)
  1. ZOPICLONE [Suspect]
     Active Substance: ZOPICLONE
     Dosage: 14 DF, UNK
     Route: 048
     Dates: start: 20171224, end: 20171224
  2. SKENAN [Suspect]
     Active Substance: MORPHINE SULFATE
     Dosage: 50 DF, UNK
     Route: 048
     Dates: start: 20171224, end: 20171224
  3. CELEBREX [Suspect]
     Active Substance: CELECOXIB
     Indication: ARTHRITIS
     Dosage: 11 DF, UNK
     Route: 048
     Dates: start: 20171224, end: 20171224
  4. ALPRAZOLAM. [Suspect]
     Active Substance: ALPRAZOLAM
     Dosage: 17 DF, UNK
     Route: 048
     Dates: start: 20171224, end: 20171224

REACTIONS (4)
  - Overdose [Unknown]
  - Metabolic acidosis [Unknown]
  - Acute hepatic failure [Unknown]
  - Cardiac failure acute [Unknown]

NARRATIVE: CASE EVENT DATE: 20171224
